FAERS Safety Report 4596860-4 (Version None)
Quarter: 2005Q1

REPORT INFORMATION
  Report Type: 
  Country: None (occurrence: None)
  Receive Date: 20050225
  Receipt Date: 20050215
  Transmission Date: 20050727
  Serious: Yes (Hospitalization)
  Sender: FDA-Public Use
  Company Number: US014713

PATIENT
  Sex: Female
  Weight: 62.1428 kg

DRUGS (7)
  1. PROVIGIL [Suspect]
     Indication: ATTENTION DEFICIT/HYPERACTIVITY DISORDER
     Dosage: 400 MG QD; ORAL
     Route: 048
     Dates: start: 20040201, end: 20040501
  2. PROVIGIL [Suspect]
     Indication: SOMNOLENCE
     Dosage: 400 MG QD; ORAL
     Route: 048
     Dates: start: 20040201, end: 20040501
  3. PROVIGIL [Suspect]
     Indication: ATTENTION DEFICIT/HYPERACTIVITY DISORDER
     Dosage: 600 MG QD; ORAL
     Route: 048
     Dates: start: 20040501, end: 20040601
  4. PROVIGIL [Suspect]
     Indication: SOMNOLENCE
     Dosage: 600 MG QD; ORAL
     Route: 048
     Dates: start: 20040501, end: 20040601
  5. PROVIGIL [Suspect]
     Indication: ATTENTION DEFICIT/HYPERACTIVITY DISORDER
     Dosage: 200 MG QD; ORAL
     Route: 048
     Dates: start: 20041101
  6. PROVIGIL [Suspect]
     Indication: SOMNOLENCE
     Dosage: 200 MG QD; ORAL
     Route: 048
     Dates: start: 20041101
  7. ESTRATEST [Concomitant]

REACTIONS (4)
  - DRUG EFFECT DECREASED [None]
  - DRUG INTOLERANCE [None]
  - OFF LABEL USE [None]
  - TRANSIENT ISCHAEMIC ATTACK [None]
